FAERS Safety Report 4659846-7 (Version None)
Quarter: 2005Q2

REPORT INFORMATION
  Report Type: 
  Country: None (occurrence: None)
  Receive Date: 20050510
  Receipt Date: 20050429
  Transmission Date: 20051028
  Serious: Yes (Hospitalization, Other)
  Sender: FDA-Public Use
  Company Number: 2005015219

PATIENT
  Age: 75 Year
  Sex: Male
  Weight: 95.2554 kg

DRUGS (8)
  1. DETROL LA [Suspect]
     Indication: ILL-DEFINED DISORDER
  2. LIPITOR [Suspect]
     Indication: BLOOD CHOLESTEROL INCREASED
     Dates: start: 20050101
  3. OXYBUTYNIN CHLORIDE [Suspect]
     Indication: POLLAKIURIA
     Dosage: 1 IN 2 WK TRANSDERMAL
     Route: 062
     Dates: start: 20040601
  4. METOPROLOL [Concomitant]
  5. LISINOPRIL [Concomitant]
  6. LOVASTATIN [Concomitant]
  7. CELECOXIB [Concomitant]
  8. ACETYLSALICYLIC ACID [Concomitant]

REACTIONS (6)
  - BLOOD CHOLESTEROL INCREASED [None]
  - CORONARY ARTERIAL STENT INSERTION [None]
  - DIZZINESS [None]
  - DRUG INEFFECTIVE [None]
  - POLLAKIURIA [None]
  - PROSTATIC OPERATION [None]
